FAERS Safety Report 21596221 (Version 7)
Quarter: 2024Q2

REPORT INFORMATION
  Report Type: Spontaneous
  Country: US (occurrence: US)
  Receive Date: 20221115
  Receipt Date: 20240425
  Transmission Date: 20240716
  Serious: No
  Sender: FDA-Public Use
  Company Number: US-002147023-NVSC2022US256221

PATIENT
  Sex: Female

DRUGS (9)
  1. MEKINIST [Suspect]
     Active Substance: TRAMETINIB DIMETHYL SULFOXIDE
     Indication: Neoplasm
     Dosage: 2 MG, QD
     Route: 048
     Dates: start: 20221013
  2. MEKINIST [Suspect]
     Active Substance: TRAMETINIB DIMETHYL SULFOXIDE
     Dosage: 2 MG, QD
     Route: 048
     Dates: start: 202210
  3. MEKINIST [Suspect]
     Active Substance: TRAMETINIB DIMETHYL SULFOXIDE
     Dosage: 1 MG, QD (AT BEDTIME)
     Route: 048
     Dates: start: 202302
  4. MEKINIST [Suspect]
     Active Substance: TRAMETINIB DIMETHYL SULFOXIDE
     Dosage: 1.5 MG, QD (STRENGTH: 0.5MG)
     Route: 048
     Dates: start: 202304
  5. TAFINLAR [Suspect]
     Active Substance: DABRAFENIB MESYLATE
     Indication: Neoplasm
     Dosage: 150 MG, Q12H
     Route: 048
     Dates: start: 20221013
  6. TAFINLAR [Suspect]
     Active Substance: DABRAFENIB MESYLATE
     Dosage: 150 MG, BID
     Route: 048
     Dates: start: 202210
  7. TAFINLAR [Suspect]
     Active Substance: DABRAFENIB MESYLATE
     Dosage: 75 MG (AM)
     Route: 065
  8. TAFINLAR [Suspect]
     Active Substance: DABRAFENIB MESYLATE
     Dosage: 150 MG, (PM)
     Route: 065
  9. TAFINLAR [Suspect]
     Active Substance: DABRAFENIB MESYLATE
     Dosage: 150 MG, Q12H
     Route: 048
     Dates: start: 202210

REACTIONS (11)
  - Lip dry [Not Recovered/Not Resolved]
  - Chapped lips [Not Recovered/Not Resolved]
  - Middle insomnia [Unknown]
  - Poor quality sleep [Unknown]
  - Menstruation irregular [Unknown]
  - Heavy menstrual bleeding [Unknown]
  - Asthenia [Unknown]
  - Night sweats [Unknown]
  - Fatigue [Unknown]
  - Chills [Unknown]
  - Brain fog [Unknown]
